FAERS Safety Report 4365935-7 (Version None)
Quarter: 2004Q2

REPORT INFORMATION
  Report Type: 
  Country: None (occurrence: None)
  Receive Date: 20040520
  Receipt Date: 20040511
  Transmission Date: 20050107
  Serious: Yes (Hospitalization)
  Sender: FDA-Public Use
  Company Number: 2004-04-1300

PATIENT
  Age: 47 Year
  Sex: Male

DRUGS (3)
  1. REBETOL [Suspect]
     Dosage: QD ORAL
     Route: 048
     Dates: start: 20031001
  2. VIRAFERONPEG [Suspect]
     Dosage: UNKNOWN INTRAVENOUS
     Route: 042
     Dates: start: 20031001
  3. DOLIPRANE [Concomitant]

REACTIONS (2)
  - CEREBROVASCULAR ACCIDENT [None]
  - MEDICATION ERROR [None]
